FAERS Safety Report 9925927 (Version 2)
Quarter: 2014Q1

REPORT INFORMATION
  Report Type: Spontaneous
  Country: GB (occurrence: GB)
  Receive Date: 20140226
  Receipt Date: 20140320
  Transmission Date: 20141002
  Serious: Yes (Disabling)
  Sender: FDA-Public Use
  Company Number: GB-PFIZER INC-2014052273

PATIENT
  Age: 35 Year
  Sex: Female
  Weight: 53 kg

DRUGS (5)
  1. LYRICA [Suspect]
     Indication: ARTHRALGIA
     Dosage: 25-300MG DAILY
     Route: 048
     Dates: start: 201302, end: 201307
  2. LYRICA [Suspect]
     Dosage: 25-300MG DAILY
     Route: 048
     Dates: start: 201307, end: 201401
  3. ARCOXIA [Concomitant]
     Indication: ARTHRALGIA
     Dosage: UNK
     Route: 048
  4. ZOPICLONE [Concomitant]
     Indication: ARTHRALGIA
     Dosage: UNK
     Route: 048
  5. CODEINE [Concomitant]
     Indication: ARTHRALGIA
     Dosage: UNK
     Route: 048

REACTIONS (14)
  - Off label use [Unknown]
  - Feeling abnormal [Not Recovered/Not Resolved]
  - Feeling drunk [Not Recovered/Not Resolved]
  - Hypersomnia [Not Recovered/Not Resolved]
  - Amnesia [Not Recovered/Not Resolved]
  - Dysarthria [Not Recovered/Not Resolved]
  - Withdrawal syndrome [Not Recovered/Not Resolved]
  - Influenza like illness [Not Recovered/Not Resolved]
  - Nausea [Not Recovered/Not Resolved]
  - Diarrhoea [Not Recovered/Not Resolved]
  - Vomiting [Not Recovered/Not Resolved]
  - Anxiety [Not Recovered/Not Resolved]
  - Insomnia [Not Recovered/Not Resolved]
  - Weight fluctuation [Not Recovered/Not Resolved]
